FAERS Safety Report 5240360-5 (Version None)
Quarter: 2007Q1

REPORT INFORMATION
  Report Type: 
  Country: None (occurrence: None)
  Receive Date: 20070219
  Receipt Date: 20070206
  Transmission Date: 20070707
  Serious: Yes (Hospitalization, Disabling, Other)
  Sender: FDA-Public Use
  Company Number: PHEH2006US10014

PATIENT
  Age: 59 Year
  Sex: Male

DRUGS (9)
  1. SPRYCEL [Suspect]
     Indication: CHRONIC MYELOID LEUKAEMIA
     Dosage: UNK, ONCE/SINGLE
     Route: 048
     Dates: start: 20070101
  2. ADVIL [Concomitant]
     Indication: PAIN
     Route: 048
  3. OXYCONTIN [Concomitant]
     Indication: PAIN
     Route: 048
  4. DILAUDID [Concomitant]
     Indication: PAIN
     Route: 048
  5. GLEEVEC [Suspect]
     Indication: CHRONIC MYELOID LEUKAEMIA
     Dosage: 400 MG, BID
     Route: 048
     Dates: start: 20060201, end: 20060701
  6. GLEEVEC [Suspect]
     Dosage: 600 MG, QD
     Route: 048
     Dates: start: 20060701
  7. GLEEVEC [Suspect]
     Dosage: 800 MG, QOD
     Route: 048
     Dates: start: 20060701, end: 20060701
  8. GLEEVEC [Suspect]
     Dosage: 400 MG, QD
     Route: 048
     Dates: start: 20030101, end: 20060201
  9. GLEEVEC [Suspect]
     Dosage: 800 MG, QD
     Route: 048

REACTIONS (18)
  - ARTHROPOD BITE [None]
  - BLISTER [None]
  - BLOOD POTASSIUM DECREASED [None]
  - BONE PAIN [None]
  - CEREBRAL HAEMORRHAGE [None]
  - DIARRHOEA [None]
  - DYSPNOEA [None]
  - GAIT DISTURBANCE [None]
  - HEADACHE [None]
  - MYALGIA [None]
  - NUCLEAR MAGNETIC RESONANCE IMAGING BRAIN ABNORMAL [None]
  - OEDEMA PERIPHERAL [None]
  - OPEN WOUND [None]
  - PYREXIA [None]
  - TREATMENT NONCOMPLIANCE [None]
  - WHITE BLOOD CELL COUNT DECREASED [None]
  - WHITE BLOOD CELL COUNT INCREASED [None]
  - WOUND COMPLICATION [None]
